FAERS Safety Report 12746556 (Version 1)
Quarter: 2016Q3

REPORT INFORMATION
  Report Type: Spontaneous
  Country: US (occurrence: US)
  Receive Date: 20160915
  Receipt Date: 20160915
  Transmission Date: 20161109
  Serious: Yes (Disabling)
  Sender: FDA-Public Use
  Company Number: None

PATIENT
  Age: 50 Year
  Sex: Male
  Weight: 64.8 kg

DRUGS (4)
  1. PERMETHRIN. [Suspect]
     Active Substance: PERMETHRIN
     Indication: LICE INFESTATION
     Dosage: OTHER STRENGTH:;OTHER DOSE:;OTHER FREQUENCY:APPLIED 3 TIMES;OTHER ROUTE:
     Route: 061
     Dates: start: 20160512, end: 20160527
  2. ZYRTEC [Concomitant]
     Active Substance: CETIRIZINE HYDROCHLORIDE
  3. MOTRIN [Concomitant]
     Active Substance: IBUPROFEN
  4. ASPRINE [Concomitant]

REACTIONS (6)
  - Paraesthesia [None]
  - Anhedonia [None]
  - Skin burning sensation [None]
  - Fine motor skill dysfunction [None]
  - Muscle contractions involuntary [None]
  - Sleep disorder [None]

NARRATIVE: CASE EVENT DATE: 20160527
